FAERS Safety Report 23573543 (Version 1)
Quarter: 2024Q1

REPORT INFORMATION
  Report Type: Spontaneous
  Country: PT (occurrence: PT)
  Receive Date: 20240228
  Receipt Date: 20240228
  Transmission Date: 20240410
  Serious: Yes (Hospitalization)
  Sender: FDA-Public Use
  Company Number: None

PATIENT
  Age: 73 Year
  Sex: Male
  Weight: 80 kg

DRUGS (7)
  1. FLUOROURACIL [Suspect]
     Active Substance: FLUOROURACIL
     Indication: Colon neoplasm
     Dates: start: 20231017
  2. METOCLOPRAMIDE [Concomitant]
     Active Substance: METOCLOPRAMIDE
  3. NYSTATIN [Concomitant]
     Active Substance: NYSTATIN
  4. LEUCOVORIN [Concomitant]
     Active Substance: LEUCOVORIN\LEUCOVORIN CALCIUM
     Indication: Colon neoplasm
  5. LOPERAMIDE [Concomitant]
     Active Substance: LOPERAMIDE
  6. ACETAMINOPHEN [Concomitant]
     Active Substance: ACETAMINOPHEN
  7. IRINOTECAN [Concomitant]
     Active Substance: IRINOTECAN
     Indication: Colon neoplasm

REACTIONS (1)
  - Seizure [Recovered/Resolved]

NARRATIVE: CASE EVENT DATE: 20231018
